FAERS Safety Report 20227621 (Version 1)
Quarter: 2021Q4

REPORT INFORMATION
  Report Type: Spontaneous
  Country: RU (occurrence: RU)
  Receive Date: 20211224
  Receipt Date: 20211224
  Transmission Date: 20220303
  Serious: Yes (Death)
  Sender: FDA-Public Use
  Company Number: RU-BoehringerIngelheim-2021-BI-145407

PATIENT
  Age: 57 Year
  Sex: Female
  Weight: 120 kg

DRUGS (4)
  1. NINTEDANIB [Suspect]
     Active Substance: NINTEDANIB
     Indication: Hypersensitivity pneumonitis
     Route: 048
     Dates: start: 20210810, end: 20211030
  2. NINTEDANIB [Suspect]
     Active Substance: NINTEDANIB
     Indication: Pulmonary fibrosis
  3. NINTEDANIB [Suspect]
     Active Substance: NINTEDANIB
     Indication: Respiratory failure
  4. NINTEDANIB [Suspect]
     Active Substance: NINTEDANIB
     Indication: Pulmonary hypertension

REACTIONS (1)
  - COVID-19 [Fatal]
